FAERS Safety Report 19047743 (Version 4)
Quarter: 2021Q2

REPORT INFORMATION
  Report Type: Report from Study
  Country: US (occurrence: US)
  Receive Date: 20210323
  Receipt Date: 20210525
  Transmission Date: 20210717
  Serious: No
  Sender: FDA-Public Use
  Company Number: NVSC2021US061659

PATIENT
  Sex: Female

DRUGS (3)
  1. KISQALI [Suspect]
     Active Substance: RIBOCICLIB
     Route: 048
  2. KISQALI [Suspect]
     Active Substance: RIBOCICLIB
     Route: 048
  3. KISQALI [Suspect]
     Active Substance: RIBOCICLIB
     Indication: PRODUCT USED FOR UNKNOWN INDICATION
     Dosage: UNK
     Route: 048

REACTIONS (10)
  - Product dose omission issue [Unknown]
  - Product supply issue [Unknown]
  - Vomiting [Unknown]
  - Pyrexia [Unknown]
  - Nausea [Unknown]
  - Dizziness [Unknown]
  - Chest discomfort [Unknown]
  - Fatigue [Unknown]
  - Breast pain [Unknown]
  - Sensory disturbance [Unknown]
